FAERS Safety Report 4546428-0 (Version None)
Quarter: 2005Q1

REPORT INFORMATION
  Report Type: 
  Country: None (occurrence: None)
  Receive Date: 20050103
  Receipt Date: 20041214
  Transmission Date: 20050727
  Serious: Yes (Hospitalization)
  Sender: FDA-Public Use
  Company Number: USA041080342

PATIENT
  Age: 58 Year
  Sex: Female
  Weight: 78 kg

DRUGS (9)
  1. CYMBALTA [Suspect]
     Indication: DEPRESSION
     Dosage: 60 MG DAY
     Dates: start: 20040901, end: 20040929
  2. DICLOFENAC W/MISOPROSTOL [Concomitant]
  3. INDERAL [Concomitant]
  4. ACIPHEX [Concomitant]
  5. CLONOPIN (CLONAZEPAM) [Concomitant]
  6. ALLEGRA [Concomitant]
  7. AMARYL [Concomitant]
  8. ADALAT [Concomitant]
  9. ZOMIG [Concomitant]

REACTIONS (4)
  - BLOOD GLUCOSE INCREASED [None]
  - BLOOD POTASSIUM DECREASED [None]
  - HEPATITIS [None]
  - PCO2 DECREASED [None]
